FAERS Safety Report 24650393 (Version 1)
Quarter: 2024Q4

REPORT INFORMATION
  Report Type: Spontaneous
  Country: GB (occurrence: GB)
  Receive Date: 20241122
  Receipt Date: 20241122
  Transmission Date: 20250115
  Serious: Yes (Other)
  Sender: SANDOZ
  Company Number: None

PATIENT
  Age: 79 Year
  Sex: Female
  Weight: 44 kg

DRUGS (3)
  1. CLARITHROMYCIN [Suspect]
     Active Substance: CLARITHROMYCIN
     Indication: Chronic obstructive pulmonary disease
     Dosage: 500 MG, Q12H (TWICE A DAY)
     Route: 048
     Dates: start: 20241105, end: 20241112
  2. HYDRO CAINE [Concomitant]
     Indication: Product used for unknown indication
     Dosage: 6ML SYRINGE
     Route: 065
     Dates: start: 20231023, end: 20240820
  3. OPTIFLO S [Concomitant]
     Indication: Product used for unknown indication
     Dosage: 50ML BOTTLE
     Route: 065
     Dates: start: 20231023, end: 20240820

REACTIONS (1)
  - Muscular weakness [Recovered/Resolved]

NARRATIVE: CASE EVENT DATE: 20241114
